FAERS Safety Report 20334953 (Version 1)
Quarter: 2022Q1

REPORT INFORMATION
  Report Type: Spontaneous
  Country: FR (occurrence: None)
  Receive Date: 20220114
  Receipt Date: 20220114
  Transmission Date: 20220423
  Serious: Yes (Other)
  Sender: FDA-Public Use
  Company Number: FR-ROCHE-3000347

PATIENT
  Age: 29 Year
  Sex: Male
  Weight: 85 kg

DRUGS (4)
  1. RITUXIMAB [Suspect]
     Active Substance: RITUXIMAB
     Indication: Nephrotic syndrome
     Dosage: 2 DOSES
     Route: 065
     Dates: start: 201603
  2. RITUXIMAB [Suspect]
     Active Substance: RITUXIMAB
     Dosage: 2 DOSES
     Route: 065
     Dates: start: 201603
  3. RITUXIMAB [Suspect]
     Active Substance: RITUXIMAB
     Route: 065
     Dates: start: 20210630
  4. RITUXIMAB [Suspect]
     Active Substance: RITUXIMAB
     Dosage: SINGLE DOSE.
     Route: 065
     Dates: start: 202111

REACTIONS (3)
  - Off label use [Unknown]
  - Urticaria [Unknown]
  - Angioedema [Unknown]
